FAERS Safety Report 14447207 (Version 3)
Quarter: 2018Q1

REPORT INFORMATION
  Report Type: Spontaneous
  Country: US (occurrence: US)
  Receive Date: 20180126
  Receipt Date: 20180209
  Transmission Date: 20180509
  Serious: Yes (Hospitalization)
  Sender: FDA-Public Use
  Company Number: US-SAOL THERAPEUTICS-2018SAO00098

PATIENT
  Age: 66 Year
  Sex: Female

DRUGS (6)
  1. BACLOFEN. [Suspect]
     Active Substance: BACLOFEN
     Indication: MUSCLE SPASTICITY
     Dosage: 1200 ?G, \DAY
     Route: 037
  2. KETAMINE [Suspect]
     Active Substance: KETAMINE
     Dosage: 99.96 MG, \DAY
     Route: 037
  3. MORPHINE [Suspect]
     Active Substance: MORPHINE
     Dosage: 2.52 MG, \DAY
     Route: 037
  4. BACLOFEN. [Suspect]
     Active Substance: BACLOFEN
     Indication: MULTIPLE SCLEROSIS
  5. CLONIDINE. [Suspect]
     Active Substance: CLONIDINE
     Dosage: 60 ?G, \DAY
     Route: 037
  6. BUPIVACAINE. [Suspect]
     Active Substance: BUPIVACAINE
     Dosage: 1.98 MG, \DAY
     Route: 037

REACTIONS (3)
  - Device malfunction [Not Recovered/Not Resolved]
  - Drug withdrawal syndrome [Unknown]
  - Urosepsis [Unknown]

NARRATIVE: CASE EVENT DATE: 20180113
